FAERS Safety Report 6632425-8 (Version None)
Quarter: 2010Q1

REPORT INFORMATION
  Report Type: 
  Country: None (occurrence: None)
  Receive Date: 20100312
  Receipt Date: 20090804
  Transmission Date: 20100710
  Serious: No
  Sender: FDA-Public Use
  Company Number: 2008BI030664

PATIENT
  Age: 33 Year
  Sex: Female

DRUGS (5)
  1. AVONEX [Suspect]
     Indication: MULTIPLE SCLEROSIS
     Route: 030
     Dates: start: 20011214, end: 20040101
  2. AVONEX [Suspect]
     Route: 030
     Dates: start: 20060101, end: 20070531
  3. AVONEX [Suspect]
     Route: 030
     Dates: start: 20090728
  4. VITAMIN TAB [Concomitant]
  5. ACYCLOVIR [Concomitant]

REACTIONS (1)
  - PREMATURE LABOUR [None]
